FAERS Safety Report 6762984-6 (Version None)
Quarter: 2010Q2

REPORT INFORMATION
  Report Type: 
  Country: None (occurrence: None)
  Receive Date: 20100609
  Receipt Date: 20100528
  Transmission Date: 20101027
  Serious: Yes (Other)
  Sender: FDA-Public Use
  Company Number: VN-BAYER-201026790GPV

PATIENT
  Age: 72 Year
  Sex: Female
  Weight: 61 kg

DRUGS (4)
  1. GLUCOBAY [Suspect]
     Indication: DIABETES MELLITUS
     Dosage: TOTAL DAILY DOSE: 150 MG
     Route: 048
     Dates: start: 20100115, end: 20100316
  2. INSULIN MIXTARD [Concomitant]
     Indication: DIABETES MELLITUS
     Dates: start: 20050101
  3. COVERSYL PLUS [Concomitant]
     Indication: HYPERTENSION
     Route: 048
     Dates: start: 20050101
  4. ZANEDIP [Concomitant]
     Dosage: TOTAL DAILY DOSE: 10 MG  UNIT DOSE: 10 MG
     Route: 048
     Dates: start: 20091101

REACTIONS (2)
  - DIARRHOEA [None]
  - INTESTINAL HAEMORRHAGE [None]
